FAERS Safety Report 21274954 (Version 2)
Quarter: 2022Q3

REPORT INFORMATION
  Report Type: Spontaneous
  Country: US (occurrence: US)
  Receive Date: 20220831
  Receipt Date: 20220901
  Transmission Date: 20221026
  Serious: No
  Sender: FDA-Public Use
  Company Number: US-PFIZER INC-PV202200054157

PATIENT
  Age: 79 Year
  Sex: Male

DRUGS (2)
  1. BESPONSA [Suspect]
     Active Substance: INOTUZUMAB OZOGAMICIN
     Indication: Neoplasm malignant
     Dosage: 0.9 MG (DAY 1, 8, 15 EVERY 21 DAYS FOR THE FIRST CYCLE THEN ONCE EVERY 28 DAYS FOR THE SECOND CYCLE)
     Route: 042
  2. BESPONSA [Suspect]
     Active Substance: INOTUZUMAB OZOGAMICIN
     Indication: Acute lymphocytic leukaemia
     Dosage: 0.9 MG (CYCLE 1 EVERY 21 DAYS THEN CYCLE 2 EVERY 28 DAYS)
     Route: 042

REACTIONS (3)
  - Neoplasm recurrence [Unknown]
  - Off label use [Unknown]
  - Off label use [Unknown]
